FAERS Safety Report 19298725 (Version 1)
Quarter: 2021Q2

REPORT INFORMATION
  Report Type: Spontaneous
  Country: US (occurrence: US)
  Receive Date: 20210525
  Receipt Date: 20210525
  Transmission Date: 20210717
  Serious: No
  Sender: FDA-Public Use
  Company Number: US-CIPLA LTD.-2021US02652

PATIENT

DRUGS (6)
  1. RITONAVIR. [Suspect]
     Active Substance: RITONAVIR
     Indication: HIV INFECTION
     Dosage: 1 DOSAGE FORM DAILY (TAB/CAPS)
     Route: 048
     Dates: start: 20200604
  2. RETROVIR [Suspect]
     Active Substance: ZIDOVUDINE
     Dosage: 1 MILLIGRAM/KILOGRAM PER HOUR, 1 COURSE
     Route: 042
     Dates: start: 20201002, end: 20201003
  3. ATAZANAVIR. [Suspect]
     Active Substance: ATAZANAVIR
     Indication: HIV INFECTION
     Dosage: 1 DOSAGE FORM DAILY (TAB/CAPS)
     Route: 048
     Dates: start: 20200604, end: 20200805
  4. ATAZANAVIR. [Suspect]
     Active Substance: ATAZANAVIR
     Dosage: 400 MILLIGRAM PER DAY
     Route: 048
     Dates: start: 20200805
  5. RETROVIR [Suspect]
     Active Substance: ZIDOVUDINE
     Indication: HIV INFECTION
     Dosage: 2 MILLIGRAM/KILOGRAM PER HOUR, 1 COURSE
     Route: 042
     Dates: start: 20201002, end: 20201003
  6. EMTRICITABINE/TENOFOVIR [Suspect]
     Active Substance: EMTRICITABINE\TENOFOVIR
     Indication: HIV INFECTION
     Dosage: 1 DOSAGE FORM DAILY (TAB/CAPS)
     Route: 048
     Dates: start: 20200604

REACTIONS (2)
  - No adverse event [Unknown]
  - Exposure during pregnancy [Unknown]

NARRATIVE: CASE EVENT DATE: 20200604
